FAERS Safety Report 25843778 (Version 1)
Quarter: 2025Q3

REPORT INFORMATION
  Report Type: Spontaneous
  Country: EU (occurrence: EU)
  Receive Date: 20250924
  Receipt Date: 20250924
  Transmission Date: 20251021
  Serious: Yes (Life-Threatening)
  Sender: FRESENIUS KABI
  Company Number: None

PATIENT
  Age: 53 Year
  Sex: Male
  Weight: 111 kg

DRUGS (5)
  1. PROPOFOL [Suspect]
     Active Substance: PROPOFOL
     Indication: Infection
     Route: 051
     Dates: start: 20250821, end: 20250830
  2. CASPOFUNGIN [Suspect]
     Active Substance: CASPOFUNGIN
     Indication: Infection
     Route: 051
     Dates: start: 20250822, end: 20250828
  3. CASPOFUNGIN [Suspect]
     Active Substance: CASPOFUNGIN
     Route: 051
     Dates: start: 20250829, end: 20250901
  4. FUROSEMIDE [Suspect]
     Active Substance: FUROSEMIDE
     Indication: Infection
     Dosage: TEST + OCCASIONAL PLUGS, DATES UNCLEAR
     Route: 051
     Dates: start: 20250827, end: 20250827
  5. HEPARIN [Suspect]
     Active Substance: HEPARIN SODIUM
     Indication: Infection
     Route: 051
     Dates: start: 20250821, end: 20250829

REACTIONS (1)
  - Disseminated intravascular coagulation [Recovering/Resolving]

NARRATIVE: CASE EVENT DATE: 20250828
